FAERS Safety Report 6199753-4 (Version None)
Quarter: 2009Q2

REPORT INFORMATION
  Report Type: 
  Country: None (occurrence: None)
  Receive Date: 20090522
  Receipt Date: 20090520
  Transmission Date: 20091009
  Serious: No
  Sender: FDA-Public Use
  Company Number: JP-EISAI INC.-E2090-00736-SPO-JP

PATIENT
  Age: 29 Year
  Sex: Female

DRUGS (1)
  1. EXCEGRAN [Suspect]
     Indication: DRUG USE FOR UNKNOWN INDICATION
     Dosage: UNKNOWN
     Route: 048
     Dates: start: 20071201, end: 20080101

REACTIONS (1)
  - OCULOMUCOCUTANEOUS SYNDROME [None]
